FAERS Safety Report 9473369 (Version 1)
Quarter: 2013Q3

REPORT INFORMATION
  Report Type: Spontaneous
  Country: US (occurrence: US)
  Receive Date: 20130823
  Receipt Date: 20130823
  Transmission Date: 20140515
  Serious: No
  Sender: FDA-Public Use
  Company Number: US-BRISTOL-MYERS SQUIBB COMPANY-18924936

PATIENT
  Age: 47 Year
  Sex: Male

DRUGS (2)
  1. SPRYCEL [Suspect]
  2. ENALAPRIL [Concomitant]

REACTIONS (5)
  - Pleural effusion [Unknown]
  - Fatigue [Unknown]
  - Myalgia [Unknown]
  - Hypoaesthesia [Recovered/Resolved]
  - Local swelling [Unknown]
